FAERS Safety Report 7289155-1 (Version None)
Quarter: 2011Q1

REPORT INFORMATION
  Report Type: 
  Country: None (occurrence: None)
  Receive Date: 20110211
  Receipt Date: 20110208
  Transmission Date: 20110831
  Serious: No
  Sender: FDA-Public Use
  Company Number: US-PFIZER INC-2011028987

PATIENT

DRUGS (1)
  1. CHANTIX [Suspect]

REACTIONS (3)
  - MOOD SWINGS [None]
  - NIGHTMARE [None]
  - AGITATION [None]
